FAERS Safety Report 7864435-7 (Version None)
Quarter: 2011Q4

REPORT INFORMATION
  Report Type: 
  Country: None (occurrence: None)
  Receive Date: 20111028
  Receipt Date: 20111024
  Transmission Date: 20120403
  Serious: Yes (Other)
  Sender: FDA-Public Use
  Company Number: PHEH2010US03513

PATIENT
  Sex: Female

DRUGS (23)
  1. NORCO [Concomitant]
  2. AVIANE-28 [Concomitant]
  3. DIFFERIN [Concomitant]
  4. DIAZEPAM [Concomitant]
  5. DEMEROL [Concomitant]
     Dosage: 50 MG, UNK
  6. ADAPALENE [Concomitant]
  7. AMOXICILLIN [Concomitant]
  8. REGLAN [Concomitant]
  9. BENADRYL [Concomitant]
     Dosage: 50 MG, UNK
  10. FLEXERIL [Concomitant]
  11. CALCITONIN SALMON [Concomitant]
  12. PREVACID [Concomitant]
  13. DOMPERIDONE [Concomitant]
  14. CLOTRIMAZOLE [Concomitant]
     Dosage: 10 MG, 5QD
     Route: 048
  15. ZOMETA [Suspect]
     Indication: OSTEOPOROSIS
     Dosage: 4 MG, UNK
     Route: 042
  16. FORTEO [Concomitant]
  17. HYDROCODONE BITARTRATE [Concomitant]
  18. PENICILLIN [Concomitant]
  19. ZANTAC [Concomitant]
  20. CHLORHEXIDINE GLUCONATE [Concomitant]
  21. SONATA [Concomitant]
  22. ZOFRAN [Concomitant]
  23. VERSED [Concomitant]
     Dosage: 3 MG, UNK

REACTIONS (97)
  - INJURY [None]
  - PAIN [None]
  - PERIODONTAL DISEASE [None]
  - OSTEOMYELITIS CHRONIC [None]
  - TOOTH INFECTION [None]
  - FAILURE TO THRIVE [None]
  - BONE PAIN [None]
  - HEADACHE [None]
  - DEPRESSION [None]
  - PARAESTHESIA [None]
  - FIBROCYSTIC BREAST DISEASE [None]
  - VERTEBRAL WEDGING [None]
  - ECONOMIC PROBLEM [None]
  - ANHEDONIA [None]
  - MIGRAINE [None]
  - VITAMIN A DEFICIENCY [None]
  - DUODENITIS [None]
  - SINUS CONGESTION [None]
  - DYSPNOEA [None]
  - STOMATITIS [None]
  - CACHEXIA [None]
  - ABDOMINAL PAIN UPPER [None]
  - RIB FRACTURE [None]
  - EPISTAXIS [None]
  - PALPITATIONS [None]
  - VITAMIN D DEFICIENCY [None]
  - DEHYDRATION [None]
  - INTERVERTEBRAL DISC DISORDER [None]
  - PAIN IN EXTREMITY [None]
  - BACK PAIN [None]
  - DISABILITY [None]
  - HEPATITIS [None]
  - HEART RATE IRREGULAR [None]
  - OSTEOPOROSIS [None]
  - DRY MOUTH [None]
  - HYPERTHYROIDISM [None]
  - SCOLIOSIS [None]
  - FACET JOINT SYNDROME [None]
  - SIALOADENITIS [None]
  - VITAMIN C DEFICIENCY [None]
  - ANAEMIA [None]
  - UNEVALUABLE EVENT [None]
  - ANXIETY [None]
  - BREATH ODOUR [None]
  - RENAL FAILURE CHRONIC [None]
  - MALNUTRITION [None]
  - MUSCLE STRAIN [None]
  - IMPAIRED GASTRIC EMPTYING [None]
  - OSTEOPENIA [None]
  - JAUNDICE [None]
  - DRY EYE [None]
  - SINUS TACHYCARDIA [None]
  - TINNITUS [None]
  - INTERVERTEBRAL DISC DEGENERATION [None]
  - INTERVERTEBRAL DISC PROTRUSION [None]
  - HYPERALDOSTERONISM [None]
  - PINEAL GLAND CYST [None]
  - DENTAL CARIES [None]
  - HYPOGLYCAEMIA [None]
  - OBSESSIVE-COMPULSIVE DISORDER [None]
  - BONE MARROW OEDEMA [None]
  - GASTRITIS [None]
  - ANKLE FRACTURE [None]
  - WEIGHT DECREASED [None]
  - MUCOSAL INFLAMMATION [None]
  - DEAFNESS [None]
  - INSOMNIA [None]
  - BONE DENSITY DECREASED [None]
  - EUSTACHIAN TUBE DYSFUNCTION [None]
  - ALOPECIA [None]
  - JOINT SWELLING [None]
  - CEREBROVASCULAR ACCIDENT [None]
  - TIBIA FRACTURE [None]
  - FEELING ABNORMAL [None]
  - BONE MARROW FAILURE [None]
  - KYPHOSIS [None]
  - FALL [None]
  - HYPERTENSION [None]
  - HYPOVOLAEMIA [None]
  - COMPRESSION FRACTURE [None]
  - IMMUNODEFICIENCY [None]
  - RHINITIS [None]
  - NECK PAIN [None]
  - OSTEONECROSIS OF JAW [None]
  - ASCITES [None]
  - SWELLING FACE [None]
  - FACIAL PAIN [None]
  - VISION BLURRED [None]
  - EAR PAIN [None]
  - HYPOAESTHESIA [None]
  - HYPOMETABOLISM [None]
  - CRANIAL NERVE DISORDER [None]
  - ENDOCRINE DISORDER [None]
  - NASAL ULCER [None]
  - RAYNAUD'S PHENOMENON [None]
  - AGITATION [None]
  - ANOREXIA NERVOSA [None]
